FAERS Safety Report 5887516-6 (Version None)
Quarter: 2008Q3

REPORT INFORMATION
  Report Type: 
  Country: None (occurrence: None)
  Receive Date: 20080918
  Receipt Date: 20080910
  Transmission Date: 20090109
  Serious: Yes (Disabling)
  Sender: FDA-Public Use
  Company Number: PHHY2008IT07508

PATIENT
  Sex: Male

DRUGS (2)
  1. ZOMETA [Suspect]
     Indication: RENAL CANCER METASTATIC
     Dosage: 4 MG, QMO
     Route: 042
     Dates: start: 20040101, end: 20060331
  2. SUTENT [Concomitant]
     Route: 048

REACTIONS (1)
  - OSTEONECROSIS [None]
